FAERS Safety Report 7456439-3 (Version None)
Quarter: 2011Q2

REPORT INFORMATION
  Report Type: 
  Country: None (occurrence: None)
  Receive Date: 20110503
  Receipt Date: 20110426
  Transmission Date: 20111010
  Serious: Yes (Other)
  Sender: FDA-Public Use
  Company Number: JP-AMGEN-JPNSP2011021818

PATIENT
  Age: 68 Year
  Sex: Female
  Weight: 45 kg

DRUGS (6)
  1. ENBREL [Suspect]
     Indication: RHEUMATOID ARTHRITIS
     Dosage: 25 MG, QWK
     Route: 058
     Dates: start: 20090724, end: 20110128
  2. SELBEX [Concomitant]
     Dosage: 50 MG, 3X/DAY
     Route: 048
     Dates: start: 19990101
  3. AZULFIDINE [Concomitant]
     Dosage: 500 MG, 2X/DAY
     Route: 048
     Dates: start: 20090101
  4. JUVELA                             /00110502/ [Concomitant]
     Dosage: 100 MG, 3X/DAY
     Route: 048
     Dates: start: 20060101
  5. SOLANAX [Concomitant]
     Dosage: 0.4 MG, 1X/DAY
     Route: 048
  6. LIPITOR [Concomitant]
     Dosage: 5 MG, 1X/DAY
     Route: 048
     Dates: start: 20060101

REACTIONS (1)
  - SYSTEMIC LUPUS ERYTHEMATOSUS [None]
